FAERS Safety Report 16000451 (Version 1)
Quarter: 2019Q1

REPORT INFORMATION
  Report Type: Spontaneous
  Country: IE (occurrence: IE)
  Receive Date: 20190225
  Receipt Date: 20190225
  Transmission Date: 20190418
  Serious: Yes (Other)
  Sender: FDA-Public Use
  Company Number: IE-MYLANLABS-2019M1015371

PATIENT
  Age: 37 Year
  Sex: Female

DRUGS (3)
  1. MESALAZINE [Suspect]
     Active Substance: MESALAMINE
     Indication: INFLAMMATORY BOWEL DISEASE
     Dosage: UNK
     Route: 065
  2. INFLIXIMAB [Suspect]
     Active Substance: INFLIXIMAB
     Indication: INFLAMMATORY BOWEL DISEASE
     Dosage: 5 MILLIGRAM/KILOGRAM (INFLIXIMAB IS INFUSED OVER 1.5 HOURS AT A DOSE OF 5MG/KG FOR IBD AT 0, 2, 6 WE
  3. INFLIXIMAB [Suspect]
     Active Substance: INFLIXIMAB
     Dosage: 10 MILLIGRAM, CYCLE

REACTIONS (4)
  - Off label use [Unknown]
  - Product use issue [Unknown]
  - Bradycardia [Recovered/Resolved]
  - Condition aggravated [Recovered/Resolved]
